FAERS Safety Report 6743198-2 (Version None)
Quarter: 2010Q2

REPORT INFORMATION
  Report Type: 
  Country: None (occurrence: None)
  Receive Date: 20100527
  Receipt Date: 20100521
  Transmission Date: 20101027
  Serious: Yes (Death, Hospitalization)
  Sender: FDA-Public Use
  Company Number: PHHY2010US32911

PATIENT
  Sex: Female

DRUGS (2)
  1. RECLAST [Suspect]
     Dosage: 5 MG 1/ YEAR
     Route: 042
  2. VITAMIN B-12 [Concomitant]

REACTIONS (2)
  - DEATH [None]
  - SURGERY [None]
